FAERS Safety Report 4964398-8 (Version None)
Quarter: 2006Q1

REPORT INFORMATION
  Report Type: 
  Country: None (occurrence: None)
  Receive Date: 20060331
  Receipt Date: 20060320
  Transmission Date: 20060701
  Serious: Yes (Other)
  Sender: FDA-Public Use
  Company Number: HQ1088328FEB2002

PATIENT
  Age: 24 Year
  Sex: Female
  Weight: 44.04 kg

DRUGS (1)
  1. EFFEXOR XR [Suspect]
     Indication: DEPRESSION
     Dosage: 37.5 MG 1X PER 1 DAY, ORAL
     Route: 048
     Dates: start: 20010201, end: 20010601

REACTIONS (15)
  - ABDOMINAL DISTENSION [None]
  - ALOPECIA [None]
  - AUTONOMIC NEUROPATHY [None]
  - DEPRESSION [None]
  - DIARRHOEA [None]
  - DIZZINESS [None]
  - DRUG WITHDRAWAL SYNDROME [None]
  - DYSKINESIA [None]
  - FEAR [None]
  - FLATULENCE [None]
  - MUSCLE CONTRACTIONS INVOLUNTARY [None]
  - MYDRIASIS [None]
  - NEUROTRANSMITTER LEVEL ALTERED [None]
  - PARAESTHESIA [None]
  - WEIGHT DECREASED [None]
